FAERS Safety Report 5747934-3 (Version None)
Quarter: 2008Q2

REPORT INFORMATION
  Report Type: 
  Country: None (occurrence: None)
  Receive Date: 20080523
  Receipt Date: 20080515
  Transmission Date: 20081010
  Serious: Yes (Other)
  Sender: FDA-Public Use
  Company Number: US-ABBOTT-07P-163-0365515-00

PATIENT
  Sex: Male

DRUGS (8)
  1. SYNTHROID [Suspect]
     Indication: THYROID DISORDER
     Route: 048
  2. PROTONIX [Suspect]
     Indication: GASTRIC DISORDER
     Route: 048
  3. SYMLIN [Interacting]
     Indication: TYPE 2 DIABETES MELLITUS
     Route: 058
     Dates: start: 20070317
  4. SYMLIN [Interacting]
     Route: 058
     Dates: start: 20070301, end: 20070316
  5. INSULIN LISPRO [Suspect]
     Indication: TYPE 2 DIABETES MELLITUS
     Route: 058
  6. LEVEMIR [Suspect]
     Indication: TYPE 2 DIABETES MELLITUS
     Route: 058
  7. FISH OIL [Suspect]
     Indication: BLOOD CHOLESTEROL INCREASED
     Route: 048
     Dates: end: 20070321
  8. ASPIRIN [Suspect]
     Indication: BLOOD CHOLESTEROL INCREASED
     Route: 048
     Dates: end: 20070321

REACTIONS (8)
  - ACCIDENTAL OVERDOSE [None]
  - BLOOD GLUCOSE ABNORMAL [None]
  - BLOOD GLUCOSE DECREASED [None]
  - BLOOD GLUCOSE INCREASED [None]
  - DIABETES MELLITUS INADEQUATE CONTROL [None]
  - DRUG INEFFECTIVE [None]
  - DRUG INTERACTION [None]
  - GASTRIC DISORDER [None]
